FAERS Safety Report 20188214 (Version 1)
Quarter: 2021Q4

REPORT INFORMATION
  Report Type: Report from Study
  Country: GB (occurrence: GB)
  Receive Date: 20211215
  Receipt Date: 20211215
  Transmission Date: 20220303
  Serious: Yes (Other)
  Sender: FDA-Public Use
  Company Number: GB-NOVARTISPH-NVSC2021GB284407

PATIENT
  Sex: Female

DRUGS (1)
  1. COSENTYX [Suspect]
     Active Substance: SECUKINUMAB
     Indication: Behcet^s syndrome
     Dosage: 300 MG, QMO
     Route: 058
     Dates: start: 20210725

REACTIONS (2)
  - Skin cancer [Recovered/Resolved]
  - Product use in unapproved indication [Unknown]
